FAERS Safety Report 20219394 (Version 2)
Quarter: 2021Q4

REPORT INFORMATION
  Report Type: Spontaneous
  Country: US (occurrence: US)
  Receive Date: 20211222
  Receipt Date: 20211224
  Transmission Date: 20220303
  Serious: Yes (Life-Threatening, Hospitalization, Other)
  Sender: FDA-Public Use
  Company Number: US-SA-2021SA205808

PATIENT
  Age: 68 Year
  Sex: Female

DRUGS (6)
  1. HEPARIN [Suspect]
     Active Substance: HEPARIN SODIUM
     Indication: Left atrial appendage closure implant
     Dosage: 10000 IU
  2. HEPARIN [Suspect]
     Active Substance: HEPARIN SODIUM
     Indication: Anticoagulant therapy
  3. CLOPIDOGREL BISULFATE [Suspect]
     Active Substance: CLOPIDOGREL BISULFATE
     Indication: Left atrial appendage closure implant
     Dosage: UNK
  4. CLOPIDOGREL BISULFATE [Suspect]
     Active Substance: CLOPIDOGREL BISULFATE
     Indication: Anticoagulant therapy
  5. APIXABAN [Suspect]
     Active Substance: APIXABAN
     Indication: Left atrial appendage closure implant
     Dosage: UNK
  6. APIXABAN [Suspect]
     Active Substance: APIXABAN
     Indication: Anticoagulant therapy

REACTIONS (25)
  - Ocular retrobulbar haemorrhage [Unknown]
  - Orbital compartment syndrome [Unknown]
  - Nausea [Unknown]
  - Diplopia [Unknown]
  - Eye oedema [Unknown]
  - Eye pain [Unknown]
  - Periorbital haemorrhage [Unknown]
  - Exophthalmos [Unknown]
  - Pupillary reflex impaired [Unknown]
  - Optic nerve cupping [Unknown]
  - Corneal oedema [Unknown]
  - Eye movement disorder [Unknown]
  - Periorbital oedema [Unknown]
  - Periorbital haematoma [Unknown]
  - Headache [Not Recovered/Not Resolved]
  - Soft tissue swelling [Unknown]
  - Blindness [Unknown]
  - Blindness unilateral [Unknown]
  - Blindness transient [Unknown]
  - Fall [Unknown]
  - Intraocular pressure test [Unknown]
  - Stress [Unknown]
  - Eye swelling [Unknown]
  - Mass [Unknown]
  - Haematoma [Unknown]
